FAERS Safety Report 12426213 (Version 2)
Quarter: 2016Q3

REPORT INFORMATION
  Report Type: Spontaneous
  Country: US (occurrence: US)
  Receive Date: 20160601
  Receipt Date: 20160825
  Transmission Date: 20161109
  Serious: Yes (Other)
  Sender: FDA-Public Use
  Company Number: US-PFIZER INC-2016280253

PATIENT
  Age: 31 Year
  Sex: Male

DRUGS (4)
  1. VANCOMYCIN HCL [Concomitant]
     Active Substance: VANCOMYCIN HYDROCHLORIDE
     Indication: BACTERIAL INFECTION
     Dosage: VANCOMYCIN MIC, 2 G/ML
  2. DICYCLOMINE [Concomitant]
     Active Substance: DICYCLOMINE HYDROCHLORIDE
  3. DAPTOMYCIN. [Suspect]
     Active Substance: DAPTOMYCIN
     Indication: ENDOCARDITIS STAPHYLOCOCCAL
     Dosage: 500 MG, DAILY, (6.9 MG/KG)
  4. SENNA /00142201/ [Concomitant]
     Active Substance: SENNA LEAF

REACTIONS (1)
  - Liver injury [Recovered/Resolved]
